FAERS Safety Report 16779076 (Version 1)
Quarter: 2019Q3

REPORT INFORMATION
  Report Type: Spontaneous
  Country: US (occurrence: US)
  Receive Date: 20190906
  Receipt Date: 20190906
  Transmission Date: 20191005
  Serious: Yes (Hospitalization, Other)
  Sender: FDA-Public Use
  Company Number: US-SA-2019SA243128

PATIENT
  Age: 65 Year
  Sex: Female

DRUGS (1)
  1. ENOXAPARIN SODIUM. [Suspect]
     Active Substance: ENOXAPARIN SODIUM
     Indication: THROMBOSIS PROPHYLAXIS
     Dosage: 30 MG, BID
     Route: 065

REACTIONS (14)
  - Lethargy [Recovering/Resolving]
  - Anxiety [Recovering/Resolving]
  - Pulmonary embolism [Recovering/Resolving]
  - Abdominal pain upper [Recovering/Resolving]
  - Nausea [Recovering/Resolving]
  - Sepsis [Recovering/Resolving]
  - Metabolic encephalopathy [Recovering/Resolving]
  - Somnolence [Recovering/Resolving]
  - Pyrexia [Recovering/Resolving]
  - Adrenal haemorrhage [Recovering/Resolving]
  - Adrenal insufficiency [Recovering/Resolving]
  - Decreased appetite [Recovering/Resolving]
  - Hyponatraemia [Recovering/Resolving]
  - Condition aggravated [Recovering/Resolving]
